FAERS Safety Report 8196995-3 (Version None)
Quarter: 2012Q1

REPORT INFORMATION
  Report Type: 
  Country: None (occurrence: None)
  Receive Date: 20120309
  Receipt Date: 20120301
  Transmission Date: 20120608
  Serious: Yes (Hospitalization)
  Sender: FDA-Public Use
  Company Number: BE-ABBOTT-12P-013-0910582-02

PATIENT
  Sex: Male

DRUGS (10)
  1. INFLIXIMAB [Concomitant]
     Indication: CROHN'S DISEASE
     Dates: start: 20100318
  2. LEKOVIT CA [Concomitant]
     Indication: PROPHYLAXIS
     Dosage: 800 UI
     Dates: start: 20071101
  3. PENTASA [Concomitant]
     Indication: CROHN'S DISEASE
     Dates: end: 20080401
  4. COMMERCIAL HUMIRA [Concomitant]
     Indication: CROHN'S DISEASE
     Dates: start: 20080723
  5. PREDNISONE [Concomitant]
     Indication: CROHN'S DISEASE
  6. AZATHIOPRINE [Concomitant]
     Indication: CROHN'S DISEASE
     Dates: end: 20080701
  7. ENTEROL [Concomitant]
     Indication: CAMPYLOBACTER GASTROENTERITIS
     Dates: start: 20091221
  8. HUMIRA [Suspect]
     Indication: CROHN'S DISEASE
     Route: 058
     Dates: end: 20100219
  9. MEDROL [Concomitant]
     Indication: CROHN'S DISEASE
     Dates: start: 20080416, end: 20090416
  10. URSODIOL [Concomitant]
     Indication: CHOLANGITIS SCLEROSING
     Dates: start: 20080321

REACTIONS (1)
  - CROHN'S DISEASE [None]
